FAERS Safety Report 8386161-0 (Version None)
Quarter: 2012Q2

REPORT INFORMATION
  Report Type: 
  Country: None (occurrence: None)
  Receive Date: 20120525
  Receipt Date: 20120516
  Transmission Date: 20120825
  Serious: Yes (Other)
  Sender: FDA-Public Use
  Company Number: JP-SANOFI-AVENTIS-2012SA035777

PATIENT
  Age: 7 Month
  Sex: Male
  Weight: 9.3 kg

DRUGS (10)
  1. CEFACLOR [Suspect]
     Route: 048
     Dates: start: 20090801
  2. CEFOTAXIME [Suspect]
     Route: 042
  3. CEFACLOR [Suspect]
     Indication: URINARY TRACT INFECTION
     Route: 048
     Dates: start: 20090801, end: 20090801
  4. CEFOTAXIME [Suspect]
     Indication: URINARY TRACT INFECTION
     Route: 042
     Dates: start: 20090801, end: 20090801
  5. CEFOTAXIME [Suspect]
     Route: 042
     Dates: start: 20090801, end: 20090801
  6. CEFOTAXIME [Suspect]
     Route: 042
  7. CEFACLOR [Suspect]
     Route: 048
     Dates: start: 20090801, end: 20090801
  8. CEFACLOR [Suspect]
     Route: 048
  9. CEFACLOR [Suspect]
     Route: 048
     Dates: start: 20090801
  10. CEFACLOR [Suspect]
     Route: 048

REACTIONS (4)
  - COAGULOPATHY [None]
  - PROTEIN INDUCED BY VITAMIN K ABSENCE OR ANTAGONIST II INCREASED [None]
  - VITAMIN K DEFICIENCY [None]
  - PROTHROMBIN TIME PROLONGED [None]
